FAERS Safety Report 8512830-5 (Version None)
Quarter: 2012Q3

REPORT INFORMATION
  Report Type: 
  Country: None (occurrence: None)
  Receive Date: 20120716
  Receipt Date: 20120716
  Transmission Date: 20120928
  Serious: Yes (Hospitalization)
  Sender: FDA-Public Use
  Company Number: IT-PFIZER INC-2012163351

PATIENT
  Age: 72 Year
  Sex: Female

DRUGS (10)
  1. PANTOPRAZOLE SODIUM [Concomitant]
     Indication: PROPHYLAXIS AGAINST GASTROINTESTINAL ULCER
  2. ASPIRIN [Concomitant]
     Indication: CARDIOVASCULAR EVENT PROPHYLAXIS
  3. SPIRIVA [Concomitant]
     Indication: CHRONIC OBSTRUCTIVE PULMONARY DISEASE
  4. FUROSEMIDE [Concomitant]
     Indication: HYPERTENSION
  5. RAMIPRIL [Suspect]
     Indication: HYPERTENSION
     Dosage: 20 MG DAILY
     Route: 048
     Dates: start: 20120417, end: 20120501
  6. METFORMIN HYDROCHLORIDE [Concomitant]
     Indication: DIABETES MELLITUS
  7. REPAGLINIDE [Concomitant]
     Indication: DIABETES MELLITUS
  8. AMLODIPINE BESILATE [Concomitant]
  9. CLONIDINE [Concomitant]
     Indication: HYPERTENSION
  10. NITROGLYCERIN [Concomitant]
     Indication: ANGINA PECTORIS

REACTIONS (2)
  - RENAL FAILURE ACUTE [None]
  - TONGUE OEDEMA [None]
